FAERS Safety Report 8286633-3 (Version None)
Quarter: 2012Q2

REPORT INFORMATION
  Report Type: 
  Country: None (occurrence: None)
  Receive Date: 20120416
  Receipt Date: 20120403
  Transmission Date: 20120825
  Serious: Yes (Hospitalization)
  Sender: FDA-Public Use
  Company Number: DE-CELGENEUS-062-50794-12010288

PATIENT
  Age: 79 Year
  Sex: Male
  Weight: 80 kg

DRUGS (24)
  1. VIDAZA [Suspect]
     Dosage: 140MG DAILY
     Route: 041
     Dates: start: 20111130, end: 20111204
  2. DAUNORUBICIN HCL [Suspect]
     Dosage: 90 MILLIGRAM/SQ. METER
     Route: 065
     Dates: start: 20110829, end: 20110904
  3. LENOGRASTIM [Concomitant]
     Indication: NEUTROPENIA
     Dosage: MIQ IE
     Route: 058
     Dates: start: 20111228, end: 20120102
  4. TORSEMIDE [Concomitant]
     Route: 065
  5. VIDAZA [Suspect]
     Dosage: 140MG DAILY
     Route: 041
     Dates: start: 20111010, end: 20111014
  6. CYTARABINE [Suspect]
     Dosage: 200 MILLIGRAM/SQ. METER
     Route: 041
     Dates: start: 20110829, end: 20110904
  7. CYTARABINE [Suspect]
     Dosage: GRAM/SQM
     Route: 041
     Dates: start: 20111015, end: 20111019
  8. PANTOPRAZOLE [Concomitant]
     Dosage: 20 MILLIGRAM
     Route: 048
  9. TIOTROPIUM BROMIDE [Concomitant]
     Route: 055
  10. DELIX [Concomitant]
     Dosage: 2.5 MILLIGRAM
     Route: 048
     Dates: start: 20070101
  11. ERYTHROCYTES TRANSFUSION [Concomitant]
     Route: 065
  12. PLATELETS [Concomitant]
     Route: 065
  13. POSACONAZOLE [Concomitant]
     Dosage: 15 MILLILITER
     Route: 048
     Dates: start: 20111210, end: 20111229
  14. CEFTAZIDIM [Concomitant]
     Indication: FEBRILE NEUTROPENIA
     Dosage: 2 GRAM
     Route: 041
     Dates: start: 20111227, end: 20111230
  15. AZULFIDINE [Concomitant]
     Route: 041
     Dates: start: 20111130, end: 20111203
  16. CYTARABINE [Suspect]
     Dosage: 1900 MILLIGRAM
     Route: 041
     Dates: start: 20111209, end: 20111209
  17. LINEZOLID [Concomitant]
     Indication: FEBRILE NEUTROPENIA
     Dosage: 600 MILLIGRAM
     Route: 041
     Dates: start: 20111227, end: 20111230
  18. FORADIL [Concomitant]
     Route: 055
  19. CYTARABINE [Suspect]
     Dosage: 1900 MILLIGRAM
     Route: 041
     Dates: start: 20111205, end: 20111205
  20. STEROFUNDIN [Concomitant]
     Route: 065
     Dates: start: 20111130, end: 20111210
  21. NEUPOGEN [Concomitant]
     Route: 065
     Dates: start: 20111228, end: 20120101
  22. VIDAZA [Suspect]
     Indication: ACUTE MYELOID LEUKAEMIA
     Dosage: 75 MILLIGRAM/SQ. METER
     Route: 041
     Dates: start: 20110824, end: 20110828
  23. CYTARABINE [Suspect]
     Dosage: 1900 MILLIGRAM
     Route: 041
     Dates: start: 20111207, end: 20111207
  24. VERGENTAN [Concomitant]
     Route: 041
     Dates: start: 20111130, end: 20111209

REACTIONS (2)
  - ACUTE MYOCARDIAL INFARCTION [None]
  - CARDIAC FAILURE CONGESTIVE [None]
